FAERS Safety Report 4764659-1 (Version None)
Quarter: 2005Q3

REPORT INFORMATION
  Report Type: 
  Country: None (occurrence: None)
  Receive Date: 20050909
  Receipt Date: 20050831
  Transmission Date: 20060218
  Serious: Yes (Hospitalization)
  Sender: FDA-Public Use
  Company Number: FR-GLAXOSMITHKLINE-B0392859A

PATIENT
  Age: 70 Year
  Sex: Female

DRUGS (9)
  1. AUGMENTIN '125' [Suspect]
     Indication: DIVERTICULITIS
     Dosage: 1UNIT SINGLE DOSE
     Route: 042
     Dates: start: 20050729, end: 20050729
  2. COTAREG [Concomitant]
     Route: 065
  3. NIFEDIPINE [Concomitant]
     Route: 065
  4. LEVOTHYROXINE SODIUM [Concomitant]
     Route: 065
  5. DIAMOX [Concomitant]
     Route: 065
  6. KALEORID [Concomitant]
     Route: 065
  7. PILOCARPINE [Concomitant]
     Route: 065
  8. FLUOXETINE [Concomitant]
     Route: 065
  9. XANAX [Concomitant]
     Route: 065

REACTIONS (8)
  - ACUTE GENERALISED EXANTHEMATOUS PUSTULOSIS [None]
  - GLOSSODYNIA [None]
  - INTERTRIGO [None]
  - MALAISE [None]
  - RASH GENERALISED [None]
  - SKIN EXFOLIATION [None]
  - SKIN LESION [None]
  - SUPERINFECTION [None]
